FAERS Safety Report 8856191 (Version 1)
Quarter: 2012Q4

REPORT INFORMATION
  Report Type: Spontaneous
  Country: US (occurrence: None)
  Receive Date: 20121023
  Receipt Date: 20121023
  Transmission Date: 20130627
  Serious: Yes (Hospitalization)
  Sender: FDA-Public Use
  Company Number: None

PATIENT
  Age: 69 Year
  Sex: Female

DRUGS (4)
  1. PEGASYS 180MCG/0.5ML GENENTECH [Suspect]
     Route: 058
  2. PEGASYS 180MCG/0.5ML GENENTECH [Suspect]
     Route: 058
  3. RIBAVIRIN [Suspect]
  4. VICTRELIS [Suspect]

REACTIONS (3)
  - Abdominal pain upper [None]
  - Nausea [None]
  - Vomiting [None]
